FAERS Safety Report 10540453 (Version 3)
Quarter: 2015Q1

REPORT INFORMATION
  Report Type: Spontaneous
  Country: IT (occurrence: IT)
  Receive Date: 20141024
  Receipt Date: 20150213
  Transmission Date: 20150720
  Serious: Yes (Other)
  Sender: FDA-Public Use
  Company Number: IT-BRISTOL-MYERS SQUIBB COMPANY-20527784

PATIENT
  Age: 78 Year
  Sex: Male

DRUGS (12)
  1. TAVANIC [Interacting]
     Active Substance: LEVOFLOXACIN
     Indication: ACUTE SINUSITIS
     Dosage: TABS
     Route: 048
     Dates: start: 20140911, end: 20140915
  2. AUGMENTIN [Suspect]
     Active Substance: AMOXICILLIN\CLAVULANATE POTASSIUM
     Indication: BRONCHITIS
     Dosage: 875/125 MG TABS
     Route: 048
     Dates: start: 20140217, end: 20140222
  3. BRUFEN [Interacting]
     Active Substance: IBUPROFEN
     Indication: ACUTE SINUSITIS
     Dosage: 400 MG, QD
     Route: 048
     Dates: start: 20140911, end: 20140914
  4. CARDURA [Suspect]
     Active Substance: DOXAZOSIN MESYLATE
     Indication: HYPERTENSION
     Dosage: TABS
     Route: 048
     Dates: start: 20140620, end: 20140704
  5. PROPAFENONE HCL [Concomitant]
     Active Substance: PROPAFENONE HYDROCHLORIDE
     Dosage: 600 MG, UNK
     Route: 065
  6. NORVASC [Concomitant]
     Active Substance: AMLODIPINE BESYLATE
     Dosage: 5 MG TABS
     Route: 048
  7. FERRO GRADUMET [Suspect]
     Active Substance: FERROUS SULFATE\FERROUS SULFATE, DRIED
     Indication: IRON DEFICIENCY ANAEMIA
     Dosage: 105 MG, QD
     Route: 048
     Dates: start: 20140616, end: 20140704
  8. MOMENT [Concomitant]
     Active Substance: IBUPROFEN
     Dosage: 200 MG TABS
     Route: 048
  9. PANTOPRAZOLE [Concomitant]
     Active Substance: PANTOPRAZOLE SODIUM
     Route: 065
  10. CLENIL [Suspect]
     Active Substance: BECLOMETHASONE DIPROPIONATE
     Indication: ASTHMA
     Dosage: 0.8MG/2ML NEBULISER SUSPENSION
     Route: 055
     Dates: start: 20140217, end: 20140222
  11. BRONCOVALEAS [Concomitant]
     Active Substance: ALBUTEROL
     Dosage: 0.5% NEBULISER SOLUTION
     Route: 065
  12. COUMADIN [Suspect]
     Active Substance: WARFARIN SODIUM
     Indication: CEREBROVASCULAR ACCIDENT PROPHYLAXIS
     Dosage: PREVIOUSLY 32.5MG.31.25MG
     Route: 048
     Dates: start: 20081008

REACTIONS (3)
  - International normalised ratio increased [Recovered/Resolved]
  - Drug interaction [Recovered/Resolved]
  - International normalised ratio decreased [Recovered/Resolved]

NARRATIVE: CASE EVENT DATE: 20140307
